FAERS Safety Report 17748316 (Version 1)
Quarter: 2020Q2

REPORT INFORMATION
  Report Type: Spontaneous
  Country: US (occurrence: US)
  Receive Date: 20200506
  Receipt Date: 20200506
  Transmission Date: 20200714
  Serious: Yes (Other)
  Sender: FDA-Public Use
  Company Number: US-LUNDBECK-DKLU3015876

PATIENT
  Sex: Female

DRUGS (2)
  1. SABRIL [Suspect]
     Active Substance: VIGABATRIN
     Indication: PARTIAL SEIZURES
     Dates: start: 20091015
  2. SABRIL [Suspect]
     Active Substance: VIGABATRIN
     Indication: SIMPLE PARTIAL SEIZURES

REACTIONS (4)
  - Seizure [Not Recovered/Not Resolved]
  - Fatigue [Unknown]
  - Pyrexia [Unknown]
  - Generalised tonic-clonic seizure [Recovered/Resolved]
